FAERS Safety Report 10511171 (Version 1)
Quarter: 2014Q4

REPORT INFORMATION
  Report Type: Spontaneous
  Country: GB (occurrence: GB)
  Receive Date: 20141010
  Receipt Date: 20141010
  Transmission Date: 20150528
  Serious: Yes (Other)
  Sender: FDA-Public Use
  Company Number: GB-ASPEN PHARMA TRADING LIMITED US-AG-2014-006232

PATIENT
  Age: 63 Year
  Sex: Male

DRUGS (1)
  1. LANVIS [Suspect]
     Active Substance: THIOGUANINE ANHYDROUS
     Indication: INFLAMMATORY BOWEL DISEASE
     Dosage: AROUND 0.6MG/KG IN SPLIT DOSES
     Route: 048

REACTIONS (2)
  - Nodular regenerative hyperplasia [Unknown]
  - Off label use [Unknown]
